FAERS Safety Report 4896939-3 (Version None)
Quarter: 2006Q1

REPORT INFORMATION
  Report Type: 
  Country: None (occurrence: None)
  Receive Date: 20060127
  Receipt Date: 20060105
  Transmission Date: 20060701
  Serious: Yes (Hospitalization)
  Sender: FDA-Public Use
  Company Number: DE200601000729

PATIENT
  Age: 51 Year
  Sex: Male

DRUGS (2)
  1. ZYPREXA [Suspect]
     Indication: MANIA
     Dosage: 10 MG, DAILY (1/D), ORAL
     Route: 048
     Dates: start: 20051201, end: 20060104
  2. ZOPICLONE (ZOPICLONE) [Concomitant]

REACTIONS (1)
  - LYMPHOEDEMA [None]
